FAERS Safety Report 15596213 (Version 2)
Quarter: 2018Q4

REPORT INFORMATION
  Report Type: Spontaneous
  Country: JP (occurrence: JP)
  Receive Date: 20181107
  Receipt Date: 20181121
  Transmission Date: 20190205
  Serious: Yes (Other)
  Sender: FDA-Public Use
  Company Number: PHHY2018JP144366

PATIENT
  Age: 40 Year
  Sex: Female
  Weight: 54.4 kg

DRUGS (4)
  1. BETAMETHASONE. [Suspect]
     Active Substance: BETAMETHASONE
     Indication: CHRONIC SINUSITIS
     Dosage: 0.6 MG, QD
     Route: 006
  2. LEVOCETIRIZINE HYDROCHLORIDE [Concomitant]
     Active Substance: LEVOCETIRIZINE HYDROCHLORIDE
     Indication: CHRONIC SINUSITIS
     Dosage: 5 MG, UNK
     Route: 065
  3. CLARITHROMYCIN. [Suspect]
     Active Substance: CLARITHROMYCIN
     Indication: CHRONIC SINUSITIS
     Route: 065
  4. BETAMETHASONE. [Suspect]
     Active Substance: BETAMETHASONE
     Dosage: 1.2 MG, QD
     Route: 065

REACTIONS (6)
  - Cushing^s syndrome [Recovered/Resolved]
  - Central obesity [Recovered/Resolved]
  - Oedema peripheral [Recovered/Resolved]
  - Cushingoid [Recovered/Resolved]
  - Oligomenorrhoea [Recovering/Resolving]
  - Headache [Recovered/Resolved]
